FAERS Safety Report 7301159-9 (Version None)
Quarter: 2011Q1

REPORT INFORMATION
  Report Type: 
  Country: None (occurrence: None)
  Receive Date: 20110218
  Receipt Date: 20101223
  Transmission Date: 20110831
  Serious: Yes (Hospitalization)
  Sender: FDA-Public Use
  Company Number: US-BAYER-201039511NA

PATIENT
  Sex: Female
  Weight: 109.9 kg

DRUGS (2)
  1. FLEXERIL [Concomitant]
  2. YAZ [Suspect]
     Indication: MENORRHAGIA
     Route: 048
     Dates: start: 20081201, end: 20090901

REACTIONS (5)
  - CHEST PAIN [None]
  - DEEP VEIN THROMBOSIS [None]
  - DYSPNOEA EXERTIONAL [None]
  - PULMONARY EMBOLISM [None]
  - PAIN IN EXTREMITY [None]
